FAERS Safety Report 17866636 (Version 4)
Quarter: 2020Q3

REPORT INFORMATION
  Report Type: Report from Study
  Country: US (occurrence: US)
  Receive Date: 20200605
  Receipt Date: 20200930
  Transmission Date: 20201103
  Serious: No
  Sender: FDA-Public Use
  Company Number: US-SA-2020SA141677

PATIENT

DRUGS (1)
  1. DUPILUMAB [Suspect]
     Active Substance: DUPILUMAB
     Indication: ASTHMA
     Dosage: 200 MG, QOW
     Route: 058
     Dates: start: 202004

REACTIONS (11)
  - Arthralgia [Unknown]
  - Oral herpes [Unknown]
  - Asthma [Unknown]
  - Injection site mass [Unknown]
  - Injection site reaction [Unknown]
  - Injection site irritation [Unknown]
  - Cough [Not Recovered/Not Resolved]
  - Condition aggravated [Unknown]
  - Injection site erythema [Unknown]
  - Dyspnoea [Recovered/Resolved]
  - Off label use [Unknown]

NARRATIVE: CASE EVENT DATE: 2020
